FAERS Safety Report 8331830 (Version 4)
Quarter: 2012Q4

REPORT INFORMATION
  Report Type: 
  Country: US (occurrence: US)
  Receive Date: 20120111
  Receipt Date: 20120904
  Transmission Date: 20130627
  Serious: No
  Sender: FDA-Public Use
  Company Number: US-AMGEN-USASP2011065179

PATIENT
  Age: 63 Year
  Sex: Female
  Weight: 64.4 kg

DRUGS (17)
  1. ENBREL [Suspect]
     Indication: RHEUMATOID ARTHRITIS
     Dosage: 50 mg, qwk
     Route: 058
     Dates: start: 20110627
  2. ASA [Concomitant]
     Dosage: 81 mg, UNK
     Dates: start: 20100611
  3. METHADONE [Concomitant]
     Dosage: 10 mg, UNK
     Dates: start: 20100611
  4. DYNACIRC [Concomitant]
     Dosage: 5 mg, qd
     Dates: start: 20100611
  5. LIPITOR [Concomitant]
     Dosage: 10 mg, qhs
  6. CALCIUM [Concomitant]
     Dosage: 1000 mg, qd
     Dates: start: 20100611
  7. VITAMIN A D [Concomitant]
     Dosage: UNK UNK, qd
     Dates: start: 20100611
  8. PLAQUENIL [Concomitant]
     Dosage: 200 mg, bid
     Dates: start: 20110627
  9. ARAVA [Concomitant]
     Dosage: 10 mg, UNK
  10. SERTRALINE [Concomitant]
     Dosage: UNK UNK, qd
     Dates: start: 20110627
  11. PROCARDIA [Concomitant]
     Dosage: 60 mg, qd
     Dates: start: 20110627
  12. IBUPROFEN [Concomitant]
     Dosage: 800 mg, UNK
     Dates: start: 20110627
  13. PROAIR HFA [Concomitant]
     Dosage: UNK UNK, qhs
     Dates: start: 20110627
  14. FISH OIL [Concomitant]
     Dosage: UNK UNK, qd
     Dates: start: 20110627
  15. VITAMIN C [Concomitant]
     Dosage: UNK UNK, qd
     Dates: start: 20110627
  16. PRAVASTATIN [Concomitant]
     Dosage: UNK UNK, qhs
     Dates: start: 20120118
  17. AZULFIDINE [Concomitant]
     Dosage: 500 mg, UNK

REACTIONS (6)
  - Alopecia [Not Recovered/Not Resolved]
  - Red blood cell count abnormal [Unknown]
  - Red cell distribution width abnormal [Unknown]
  - Lymphocyte count abnormal [Unknown]
  - C-reactive protein abnormal [Unknown]
  - Red blood cell sedimentation rate increased [Unknown]
